FAERS Safety Report 14013509 (Version 2)
Quarter: 2018Q2

REPORT INFORMATION
  Report Type: Spontaneous
  Country: FR (occurrence: FR)
  Receive Date: 20170926
  Receipt Date: 20180430
  Transmission Date: 20180711
  Serious: Yes (Other)
  Sender: FDA-Public Use
  Company Number: FR-MERCK KGAA-2027810

PATIENT
  Age: 60 Year
  Sex: Female

DRUGS (2)
  1. NOVOTHYROX [Suspect]
     Active Substance: LEVOTHYROXINE SODIUM
     Route: 048
     Dates: start: 20170701
  2. NOVOTHYROX [Suspect]
     Active Substance: LEVOTHYROXINE SODIUM
     Indication: AUTOIMMUNE THYROIDITIS
     Route: 048
     Dates: start: 20170701

REACTIONS (28)
  - Muscle spasms [Not Recovered/Not Resolved]
  - Vision blurred [None]
  - Anti-thyroid antibody positive [None]
  - Irritability [None]
  - Personal relationship issue [None]
  - Vertigo [Not Recovered/Not Resolved]
  - Fatigue [None]
  - Fatigue [Not Recovered/Not Resolved]
  - Stress [None]
  - Amnesia [None]
  - General physical health deterioration [None]
  - Mood swings [None]
  - Somnolence [None]
  - Gastric disorder [Not Recovered/Not Resolved]
  - Micturition urgency [None]
  - Anxiety [None]
  - Insomnia [None]
  - Nausea [Not Recovered/Not Resolved]
  - Headache [Not Recovered/Not Resolved]
  - Abdominal pain [None]
  - Diffuse alopecia [Not Recovered/Not Resolved]
  - Feeling abnormal [None]
  - Muscle fatigue [None]
  - Emotional distress [None]
  - Gastrointestinal pain [None]
  - Blood thyroid stimulating hormone [None]
  - Depression [None]
  - Product formulation issue [Not Recovered/Not Resolved]

NARRATIVE: CASE EVENT DATE: 201708
